FAERS Safety Report 6643677-2 (Version None)
Quarter: 2010Q1

REPORT INFORMATION
  Report Type: 
  Country: None (occurrence: None)
  Receive Date: 20100321
  Receipt Date: 20100308
  Transmission Date: 20100710
  Serious: Yes (Death)
  Sender: FDA-Public Use
  Company Number: DE-BRISTOL-MYERS SQUIBB COMPANY-15023054

PATIENT
  Age: 27 Year
  Sex: Male

DRUGS (3)
  1. CISPLATIN [Suspect]
     Indication: TESTICULAR EMBRYONAL CARCINOMA
     Dosage: DAILY ON THE FIRST 5 DAYS.
  2. ETOPOSIDE [Suspect]
     Indication: TESTICULAR EMBRYONAL CARCINOMA
     Dosage: GIVEN DAILY ON THE FIRST 5 DAYS.
  3. BLEOMYCIN SULFATE [Suspect]
     Indication: TESTICULAR EMBRYONAL CARCINOMA

REACTIONS (2)
  - CAROTID ARTERY THROMBOSIS [None]
  - CEREBROVASCULAR ACCIDENT [None]
